FAERS Safety Report 23178580 (Version 1)
Quarter: 2023Q4

REPORT INFORMATION
  Report Type: Spontaneous
  Country: GB (occurrence: GB)
  Receive Date: 20231113
  Receipt Date: 20231113
  Transmission Date: 20240110
  Serious: Yes (Other)
  Sender: FDA-Public Use
  Company Number: None

PATIENT
  Age: 17 Year
  Sex: Female
  Weight: 42 kg

DRUGS (7)
  1. MOMETASONE FUROATE [Suspect]
     Active Substance: MOMETASONE FUROATE
     Dosage: APPLY DAILY
     Dates: start: 20221230
  2. BENZOYL PEROXIDE [Concomitant]
     Active Substance: BENZOYL PEROXIDE
     Dosage: APPLY AT NIGHT
     Dates: start: 20210609
  3. BETAMETHASONE VALERATE [Concomitant]
     Active Substance: BETAMETHASONE VALERATE
     Dosage: MODERATE POTENCY STEROID CREAM - APPLY
     Dates: start: 20231031
  4. CALCIPOTRIENE [Concomitant]
     Active Substance: CALCIPOTRIENE
     Indication: Psoriasis
     Dates: start: 20231031
  5. EPIDUO [Concomitant]
     Active Substance: ADAPALENE\BENZOYL PEROXIDE
     Dosage: APPLY THINLY IN THE EVENING.
     Dates: start: 20230727
  6. FLURANDRENOLIDE [Concomitant]
     Active Substance: FLURANDRENOLIDE
     Dosage: TAPE TO FISSURED SKIN ON FINGERTIPS MANE
     Dates: start: 20220527
  7. LYMECYCLINE [Concomitant]
     Active Substance: LYMECYCLINE
     Dates: start: 20230727

REACTIONS (1)
  - Blister [Recovered/Resolved]
